FAERS Safety Report 5083419-8 (Version None)
Quarter: 2006Q3

REPORT INFORMATION
  Report Type: 
  Country: None (occurrence: None)
  Receive Date: 20060816
  Receipt Date: 20060802
  Transmission Date: 20061208
  Serious: Yes (Hospitalization)
  Sender: FDA-Public Use
  Company Number: 2006-BP-01565RO

PATIENT
  Age: 28 Year
  Sex: Female

DRUGS (2)
  1. AZATHIOPRINE [Suspect]
     Indication: CROHN'S DISEASE
     Dosage: INITIAL DOSE OF 100 MG/DAY INCREASED TO 150 MG/DAY
  2. INFLIXIMAB (INFLIXIMAB) [Suspect]
     Indication: CROHN'S DISEASE
     Dosage: 5 MG/KG INITIALLY EVERY 3 MONTHS

REACTIONS (11)
  - ALPHA 1 FOETOPROTEIN INCREASED [None]
  - ALPHA-1 ANTI-TRYPSIN INCREASED [None]
  - ANAEMIA [None]
  - CONDITION AGGRAVATED [None]
  - FEMALE GENITAL TRACT FISTULA [None]
  - GLYCOGEN STORAGE DISEASE TYPE VIII [None]
  - HEPATIC NEOPLASM MALIGNANT [None]
  - PERIANAL ABSCESS [None]
  - THERAPY NON-RESPONDER [None]
  - THROMBOCYTHAEMIA [None]
  - URINE LEUKOCYTE ESTERASE POSITIVE [None]
